FAERS Safety Report 17560837 (Version 1)
Quarter: 2020Q1

REPORT INFORMATION
  Report Type: Spontaneous
  Country: DE (occurrence: DE)
  Receive Date: 20200319
  Receipt Date: 20200319
  Transmission Date: 20200409
  Serious: Yes (Other)
  Sender: FDA-Public Use
  Company Number: DE-MICRO LABS LIMITED-ML2020-00795

PATIENT
  Age: 55 Year

DRUGS (4)
  1. ASPIRIN. [Suspect]
     Active Substance: ASPIRIN
     Indication: THROMBOSIS PROPHYLAXIS
     Dosage: 1-0-0-0
     Route: 048
  2. DIPYRONE [Suspect]
     Active Substance: DIPYRONE
     Indication: PAIN
     Dosage: 500MG 2-2-2-2
     Route: 048
  3. PHENPROCOUMON [Interacting]
     Active Substance: PHENPROCOUMON
     Indication: THROMBOSIS PROPHYLAXIS
     Dosage: PHENPROCOUMON 3MG WEEKLY DOSE 7 TABLETS
     Route: 048
  4. CLINDAMYCIN. [Suspect]
     Active Substance: CLINDAMYCIN
     Indication: GANGRENE
     Dosage: CLINDAMYCIN 600MG 1-1-1.
     Route: 048

REACTIONS (3)
  - Epistaxis [Unknown]
  - International normalised ratio increased [Unknown]
  - Drug interaction [Unknown]
